FAERS Safety Report 11579069 (Version 1)
Quarter: 2015Q3

REPORT INFORMATION
  Report Type: Report from Study
  Country: AU (occurrence: AU)
  Receive Date: 20150930
  Receipt Date: 20150930
  Transmission Date: 20151125
  Serious: Yes (Death, Other)
  Sender: FDA-Public Use
  Company Number: AU-BAYER-2015-431527

PATIENT
  Age: 69 Year
  Sex: Female

DRUGS (1)
  1. BETAFERON [Suspect]
     Active Substance: INTERFERON BETA-1B
     Indication: MULTIPLE SCLEROSIS
     Dosage: 250 MCG/ML, QOD
     Route: 058
     Dates: start: 20050101, end: 20140701

REACTIONS (4)
  - Gait disturbance [None]
  - Death [Fatal]
  - Multiple sclerosis [None]
  - Fall [None]

NARRATIVE: CASE EVENT DATE: 2014
